FAERS Safety Report 9504394 (Version 4)
Quarter: 2013Q4

REPORT INFORMATION
  Report Type: Spontaneous
  Country: US (occurrence: US)
  Receive Date: 20130906
  Receipt Date: 20131016
  Transmission Date: 20140711
  Serious: Yes (Hospitalization)
  Sender: FDA-Public Use
  Company Number: US-JNJFOC-20130711341

PATIENT
  Age: 18 Year
  Sex: Male
  Weight: 131.54 kg

DRUGS (23)
  1. RISPERDAL [Suspect]
     Indication: SCHIZOPHRENIA
     Route: 048
     Dates: start: 2003
  2. RISPERDAL [Suspect]
     Indication: SCHIZOPHRENIA
     Dosage: DAILY IN THE MORNING
     Route: 048
  3. RISPERDAL [Suspect]
     Indication: SCHIZOPHRENIA
     Route: 048
     Dates: end: 201303
  4. RISPERDAL [Suspect]
     Indication: SCHIZOPHRENIA
     Dosage: 2MG TABLET- HALF TABLET IN THE MORNING AND 1.5 TABLET AT NIGHT (TOTAL DOSE 4MG).
     Route: 048
     Dates: end: 201302
  5. RISPERDAL [Suspect]
     Indication: SCHIZOPHRENIA
     Dosage: DAILY AT NIGHT
     Route: 048
  6. RISPERDAL [Suspect]
     Indication: SCHIZOPHRENIA
     Dosage: DAILY AT NIGHT
     Route: 048
  7. RISPERDAL [Suspect]
     Indication: SCHIZOPHRENIA
     Route: 048
     Dates: start: 200211
  8. RISPERDAL [Suspect]
     Indication: SCHIZOPHRENIA
     Dosage: 2 MG IN THE MORNING AND 4 MG (TWO 2 MG) AT NIGHT.
     Route: 048
     Dates: start: 2013
  9. RISPERDAL [Suspect]
     Indication: MENTAL DISORDER
     Dosage: 2 MG IN THE MORNING AND 4 MG (TWO 2 MG) AT NIGHT.
     Route: 048
     Dates: start: 2013
  10. RISPERDAL [Suspect]
     Indication: MENTAL DISORDER
     Route: 048
     Dates: start: 200211
  11. RISPERDAL [Suspect]
     Indication: MENTAL DISORDER
     Dosage: 2MG TABLET- HALF TABLET IN THE MORNING AND 1.5 TABLET AT NIGHT (TOTAL DOSE 4MG).
     Route: 048
     Dates: end: 201302
  12. RISPERDAL [Suspect]
     Indication: MENTAL DISORDER
     Route: 048
     Dates: end: 201303
  13. RISPERDAL [Suspect]
     Indication: MENTAL DISORDER
     Dosage: DAILY AT NIGHT
     Route: 048
  14. RISPERDAL [Suspect]
     Indication: MENTAL DISORDER
     Dosage: DAILY IN THE MORNING
     Route: 048
  15. RISPERDAL [Suspect]
     Indication: MENTAL DISORDER
     Dosage: DAILY AT NIGHT
     Route: 048
  16. RISPERDAL [Suspect]
     Indication: MENTAL DISORDER
     Route: 048
     Dates: start: 2003
  17. RISPERIDONE [Suspect]
     Indication: MENTAL DISORDER
     Dosage: DAILY AT NIGHT
     Route: 048
  18. RISPERIDONE [Suspect]
     Indication: MENTAL DISORDER
     Dosage: DAILY IN THE MORNING
     Route: 048
  19. ZYPREXA [Suspect]
     Indication: SCHIZOPHRENIA
     Route: 048
     Dates: start: 200210, end: 200305
  20. ATIVAN [Concomitant]
     Indication: THERAPEUTIC RESPONSE DECREASED
     Dosage: AS NEEDED
     Route: 048
     Dates: start: 2005
  21. PREVACID [Concomitant]
     Indication: GASTROOESOPHAGEAL REFLUX DISEASE
     Route: 065
  22. SEROQUEL [Concomitant]
     Indication: SCHIZOPHRENIA
     Route: 065
     Dates: start: 200303, end: 200403
  23. COGENTIN [Concomitant]
     Indication: EXTRAPYRAMIDAL DISORDER
     Route: 065
     Dates: start: 200303, end: 200403

REACTIONS (7)
  - Psychotic disorder [Recovering/Resolving]
  - Ulcer [Recovering/Resolving]
  - Gastrooesophageal reflux disease [Recovering/Resolving]
  - Gynaecomastia [Not Recovered/Not Resolved]
  - Drug ineffective [Unknown]
  - Drug intolerance [Unknown]
  - Schizophrenia [Unknown]
